FAERS Safety Report 24061879 (Version 4)
Quarter: 2024Q3

REPORT INFORMATION
  Report Type: Spontaneous
  Country: US (occurrence: US)
  Receive Date: 20240708
  Receipt Date: 20240826
  Transmission Date: 20241017
  Serious: Yes (Other)
  Sender: BAYER
  Company Number: US-BAYER-2024A097017

PATIENT
  Age: 27 Year
  Sex: Female

DRUGS (1)
  1. MIRENA [Suspect]
     Active Substance: LEVONORGESTREL
     Indication: Contraception
     Dosage: 20?G/DAY
     Route: 015
     Dates: start: 20160819, end: 20240701

REACTIONS (6)
  - Device breakage [Unknown]
  - Uterine perforation [None]
  - Complication of device removal [None]
  - Medical device entrapment [None]
  - Procedural pain [None]
  - Post procedural complication [None]

NARRATIVE: CASE EVENT DATE: 20240701
